FAERS Safety Report 10948787 (Version 1)
Quarter: 2015Q1

REPORT INFORMATION
  Report Type: Spontaneous
  Country: US (occurrence: None)
  Receive Date: 20150323
  Receipt Date: 20150323
  Transmission Date: 20150721
  Serious: No
  Sender: FDA-Public Use
  Company Number: None

PATIENT
  Age: 69 Year
  Sex: Female
  Weight: 81.65 kg

DRUGS (11)
  1. BUPROPION SR 150MG [Suspect]
     Active Substance: BUPROPION
     Indication: DEPRESSION
     Dosage: STRENGTH:  150MG, QUANTITY: 1 PILL, FREQUENCY: ONCE DAILY IN AM, BY MOUTH
     Route: 048
     Dates: start: 20141220
  2. TRAVATAN [Concomitant]
     Active Substance: TRAVOPROST
  3. ZYRTEC [Concomitant]
     Active Substance: CETIRIZINE HYDROCHLORIDE
  4. CRESTOR [Concomitant]
     Active Substance: ROSUVASTATIN CALCIUM
  5. CALCIUM [Concomitant]
     Active Substance: CALCIUM
  6. PROBIOTICS [Concomitant]
     Active Substance: PROBIOTICS NOS
  7. ZANTAC [Concomitant]
     Active Substance: RANITIDINE HYDROCHLORIDE
  8. ALPHAGAN P [Concomitant]
     Active Substance: BRIMONIDINE TARTRATE
  9. MULTIVITAMINS [Concomitant]
     Active Substance: VITAMINS
  10. LOVAZA [Concomitant]
     Active Substance: OMEGA-3-ACID ETHYL ESTERS
  11. DORZOLOMIDE [Concomitant]
     Active Substance: DORZOLAMIDE\TIMOLOL

REACTIONS (6)
  - Oral disorder [None]
  - Blister [None]
  - Nausea [None]
  - Vomiting [None]
  - Stomatitis [None]
  - Cheilitis [None]

NARRATIVE: CASE EVENT DATE: 20141220
